FAERS Safety Report 16569317 (Version 4)
Quarter: 2019Q3

REPORT INFORMATION
  Report Type: Spontaneous
  Country: US (occurrence: US)
  Receive Date: 20190715
  Receipt Date: 20190816
  Transmission Date: 20191004
  Serious: Yes (Other)
  Sender: FDA-Public Use
  Company Number: US-GLAXOSMITHKLINE-US2019123829

PATIENT
  Age: 24 Year
  Sex: Female

DRUGS (2)
  1. BENLYSTA [Suspect]
     Active Substance: BELIMUMAB
     Dosage: UNK
     Route: 058
     Dates: end: 20190807
  2. BENLYSTA [Suspect]
     Active Substance: BELIMUMAB
     Indication: PRODUCT USED FOR UNKNOWN INDICATION
     Dosage: UNK
     Route: 058
     Dates: start: 20190612

REACTIONS (15)
  - Cough [Not Recovered/Not Resolved]
  - Pilonidal cyst [Recovered/Resolved]
  - Headache [Recovered/Resolved]
  - Dizziness [Recovered/Resolved]
  - Burning sensation [Unknown]
  - Injection site reaction [Recovered/Resolved]
  - Vulvovaginal burning sensation [Unknown]
  - Abdominal pain lower [Unknown]
  - Urinary retention [Unknown]
  - Exposure via skin contact [Unknown]
  - Pollakiuria [Unknown]
  - Urinary tract infection [Unknown]
  - Pain [Recovered/Resolved]
  - Injection site haemorrhage [Unknown]
  - Injection site pain [Recovered/Resolved]

NARRATIVE: CASE EVENT DATE: 20190612
